FAERS Safety Report 4573665-1 (Version None)
Quarter: 2005Q1

REPORT INFORMATION
  Report Type: 
  Country: None (occurrence: None)
  Receive Date: 20050203
  Receipt Date: 20050127
  Transmission Date: 20050727
  Serious: Yes (Hospitalization)
  Sender: FDA-Public Use
  Company Number: US014260

PATIENT
  Age: 18 Year
  Sex: Male

DRUGS (2)
  1. PROVIGIL [Suspect]
     Indication: NARCOLEPSY
     Dosage: 200 MG QD ORAL
     Route: 048
     Dates: start: 20031105
  2. METHYLPHENIDATE [Concomitant]

REACTIONS (2)
  - IMMUNE SYSTEM DISORDER [None]
  - INFECTIOUS MONONUCLEOSIS [None]
